FAERS Safety Report 15556664 (Version 2)
Quarter: 2019Q1

REPORT INFORMATION
  Report Type: Spontaneous
  Country: US (occurrence: US)
  Receive Date: 20181026
  Receipt Date: 20190111
  Transmission Date: 20190417
  Serious: No
  Sender: FDA-Public Use
  Company Number: US-ASTRAZENECA-2018SF36088

PATIENT
  Sex: Male
  Weight: 83.5 kg

DRUGS (5)
  1. ATORVASTATIN [Concomitant]
     Active Substance: ATORVASTATIN
  2. METOPROLOL SUCCINATE. [Suspect]
     Active Substance: METOPROLOL SUCCINATE
     Indication: ATRIAL FIBRILLATION
     Route: 048
  3. LISINOPRIL. [Suspect]
     Active Substance: LISINOPRIL
     Indication: BLOOD PRESSURE ABNORMAL
     Route: 048
  4. METFORMIN [Concomitant]
     Active Substance: METFORMIN HYDROCHLORIDE
  5. BYDUREON [Suspect]
     Active Substance: EXENATIDE
     Indication: DIABETES MELLITUS
     Route: 058
     Dates: start: 2018

REACTIONS (14)
  - Atrial fibrillation [Unknown]
  - Drug ineffective [Unknown]
  - Diabetes mellitus [Unknown]
  - Circumstance or information capable of leading to medication error [Unknown]
  - Umbilical hernia [Unknown]
  - Off label use [Unknown]
  - Skin exfoliation [Unknown]
  - Glycosylated haemoglobin increased [Unknown]
  - Weight decreased [Unknown]
  - Visual acuity reduced [Unknown]
  - Product dose omission [Unknown]
  - Injection site mass [Unknown]
  - Skin odour abnormal [Unknown]
  - Blood glucose decreased [Unknown]
